FAERS Safety Report 25903339 (Version 1)
Quarter: 2025Q4

REPORT INFORMATION
  Report Type: Report from Study
  Country: EU (occurrence: EU)
  Receive Date: 20251009
  Receipt Date: 20251009
  Transmission Date: 20260118
  Serious: Yes (Hospitalization, Other)
  Sender: JOHNSON AND JOHNSON
  Company Number: EU-JNJFOC-20250948087

PATIENT

DRUGS (2)
  1. USTEKINUMAB [Suspect]
     Active Substance: USTEKINUMAB
     Indication: Colitis ulcerative
     Route: 058
  2. USTEKINUMAB [Suspect]
     Active Substance: USTEKINUMAB
     Indication: Colitis ulcerative
     Route: 040

REACTIONS (14)
  - Cholangiocarcinoma [Unknown]
  - Basal cell carcinoma [Unknown]
  - Neoplasm malignant [Unknown]
  - Candida infection [Unknown]
  - COVID-19 [Unknown]
  - Anal abscess [Unknown]
  - Herpes zoster [Unknown]
  - Clostridium difficile infection [Unknown]
  - Hepatic enzyme increased [Unknown]
  - Arthralgia [Unknown]
  - Injection site reaction [Unknown]
  - Hypersensitivity [Unknown]
  - Urticaria [Unknown]
  - Therapeutic response decreased [Unknown]
